FAERS Safety Report 11648459 (Version 1)
Quarter: 2015Q4

REPORT INFORMATION
  Report Type: Spontaneous
  Country: CH (occurrence: CH)
  Receive Date: 20151021
  Receipt Date: 20151021
  Transmission Date: 20160304
  Serious: Yes (Other)
  Sender: FDA-Public Use
  Company Number: CH-BRISTOL-MYERS SQUIBB COMPANY-BMS-2015-071799

PATIENT
  Age: 8 Year
  Sex: Female
  Weight: 47 kg

DRUGS (11)
  1. CISPLATIN. [Suspect]
     Active Substance: CISPLATIN
     Indication: ADRENOCORTICAL CARCINOMA
     Dosage: 66 MG, QD
     Route: 041
     Dates: start: 20150907, end: 20150908
  2. COMILORID [Suspect]
     Active Substance: HYDROCHLOROTHIAZIDE
     Indication: PERICARDIAL EFFUSION
     Dosage: 100 MG, QD
     Route: 048
     Dates: start: 20150814, end: 20150911
  3. INDERAL [Suspect]
     Active Substance: PROPRANOLOL HYDROCHLORIDE
     Indication: SYSTOLIC DYSFUNCTION
     Dosage: 30 MG, TID
     Route: 048
     Dates: start: 20150814
  4. BACTRIM [Concomitant]
     Active Substance: SULFAMETHOXAZOLE\TRIMETHOPRIM
     Indication: PRODUCT USED FOR UNKNOWN INDICATION
     Route: 048
  5. LYSODREN [Suspect]
     Active Substance: MITOTANE
     Dosage: 7 UNK, UNK
     Route: 048
     Dates: start: 20150908, end: 20150910
  6. CLEXANE [Suspect]
     Active Substance: ENOXAPARIN SODIUM
     Indication: PULMONARY EMBOLISM
     Dosage: 35 MG, BID
     Route: 058
     Dates: start: 201507
  7. TRANDATE [Suspect]
     Active Substance: LABETALOL HYDROCHLORIDE
     Indication: SECONDARY HYPERTENSION
     Dosage: 350 MG, TID
     Route: 048
     Dates: start: 201507
  8. DOXORUBICIN [Suspect]
     Active Substance: DOXORUBICIN
     Indication: ADRENOCORTICAL CARCINOMA
     Dosage: 33 MG, QD
     Route: 041
     Dates: start: 20150910, end: 20150911
  9. LYSODREN [Suspect]
     Active Substance: MITOTANE
     Indication: ADRENOCORTICAL CARCINOMA
     Dosage: 5.5 G, QD
     Route: 048
     Dates: start: 20150706, end: 20150908
  10. ETOPOSIDE. [Suspect]
     Active Substance: ETOPOSIDE
     Indication: ADRENOCORTICAL CARCINOMA
     Dosage: 130 MG, QD
     Route: 041
     Dates: start: 20150907, end: 20150909
  11. AMLODIPINE [Concomitant]
     Active Substance: AMLODIPINE BESYLATE
     Indication: SECONDARY HYPERTENSION
     Dosage: 2.5 MG, BID
     Route: 048

REACTIONS (7)
  - Metabolic acidosis [Unknown]
  - Hyperkalaemia [Unknown]
  - Drug interaction [Unknown]
  - Hyponatraemia [Unknown]
  - Renal failure [Unknown]
  - Hypoaldosteronism [Unknown]
  - Adrenal insufficiency [Unknown]

NARRATIVE: CASE EVENT DATE: 201507
